FAERS Safety Report 11913030 (Version 1)
Quarter: 2016Q1

REPORT INFORMATION
  Report Type: Spontaneous
  Country: US (occurrence: None)
  Receive Date: 20160112
  Receipt Date: 20160112
  Transmission Date: 20160526
  Serious: Yes (Other)
  Sender: FDA-Public Use
  Company Number: None

PATIENT
  Age: 21 Year
  Sex: Female
  Weight: 74.84 kg

DRUGS (2)
  1. IRON [Concomitant]
     Active Substance: IRON
  2. SKYLA [Suspect]
     Active Substance: LEVONORGESTREL
     Dates: start: 20150723

REACTIONS (3)
  - Pelvic pain [None]
  - Complication of device removal [None]
  - Device dislocation [None]

NARRATIVE: CASE EVENT DATE: 20160108
